FAERS Safety Report 10170642 (Version 2)
Quarter: 2014Q2

REPORT INFORMATION
  Report Type: Spontaneous
  Country: US (occurrence: US)
  Receive Date: 20140514
  Receipt Date: 20140521
  Transmission Date: 20141212
  Serious: No
  Sender: FDA-Public Use
  Company Number: US-009507513-1405USA004227

PATIENT
  Sex: 0

DRUGS (1)
  1. EMEND [Suspect]
     Indication: PROPHYLAXIS OF NAUSEA AND VOMITING
     Dosage: 150MG, 1 STANDARD DOSE OF 1, FREQUENCY UNSPECIFIED
     Route: 042

REACTIONS (2)
  - Injection site erythema [Unknown]
  - Inflammation [Unknown]
